FAERS Safety Report 25982371 (Version 1)
Quarter: 2025Q4

REPORT INFORMATION
  Report Type: Spontaneous
  Country: CN (occurrence: CN)
  Receive Date: 20251031
  Receipt Date: 20251031
  Transmission Date: 20260118
  Serious: Yes (Death, Life-Threatening, Hospitalization)
  Sender: ACCORD
  Company Number: CN-Accord-510374

PATIENT
  Age: 57 Year
  Sex: Male
  Weight: 60 kg

DRUGS (11)
  1. ATORVASTATIN [Interacting]
     Active Substance: ATORVASTATIN
     Indication: Product used for unknown indication
     Route: 048
     Dates: start: 20250305, end: 20250314
  2. MIDAZOLAM [Interacting]
     Active Substance: MIDAZOLAM
     Indication: Sedation
     Dates: start: 202503
  3. REMIFENTANIL [Interacting]
     Active Substance: REMIFENTANIL
     Indication: Analgesic therapy
     Dates: start: 202503
  4. TICAGRELOR [Interacting]
     Active Substance: TICAGRELOR
     Indication: Product used for unknown indication
     Route: 048
     Dates: start: 20250305
  5. ASPIRIN [Concomitant]
     Active Substance: ASPIRIN
     Route: 048
     Dates: start: 20250304
  6. CLOPIDOGREL [Concomitant]
     Active Substance: CLOPIDOGREL BISULFATE
     Route: 048
     Dates: start: 20250304
  7. DOPAMINE [Concomitant]
     Active Substance: DOPAMINE HYDROCHLORIDE
     Dates: start: 202503
  8. EZETIMIBE [Concomitant]
     Active Substance: EZETIMIBE
     Route: 048
     Dates: start: 202503
  9. FUROSEMIDE [Concomitant]
     Active Substance: FUROSEMIDE
     Indication: Polyuria
     Dates: start: 202503
  10. NOREPINEPHRINE [Concomitant]
     Active Substance: NOREPINEPHRINE
     Indication: Blood pressure increased
     Dates: start: 202503
  11. PANTOPRAZOLE SODIUM [Concomitant]
     Active Substance: PANTOPRAZOLE SODIUM
     Indication: Gastrointestinal disorder prophylaxis
     Dates: start: 202503

REACTIONS (6)
  - Rhabdomyolysis [Fatal]
  - Acute kidney injury [Fatal]
  - Cardiac failure [Fatal]
  - Cardiac arrest [Fatal]
  - Drug interaction [Fatal]
  - Symptom masked [Fatal]

NARRATIVE: CASE EVENT DATE: 20250306
